FAERS Safety Report 6037794-8 (Version None)
Quarter: 2009Q1

REPORT INFORMATION
  Report Type: 
  Country: None (occurrence: None)
  Receive Date: 20090113
  Receipt Date: 20081230
  Transmission Date: 20090719
  Serious: Yes (Other)
  Sender: FDA-Public Use
  Company Number: 2008S1022922

PATIENT
  Sex: Male

DRUGS (4)
  1. ZIDOVUDINE [Suspect]
     Indication: HIV INFECTION
  2. LAMIVUDINE [Suspect]
     Indication: HIV INFECTION
  3. NEVIRAPINE [Suspect]
     Indication: HIV INFECTION
  4. BCG VACCINE (BCG VACCINE) [Suspect]
     Indication: IMMUNISATION

REACTIONS (6)
  - ACID FAST BACILLI INFECTION [None]
  - BIOPSY LYMPH GLAND ABNORMAL [None]
  - INJECTION SITE SCAR [None]
  - INJECTION SITE ULCER [None]
  - LYMPHADENITIS [None]
  - STAPHYLOCOCCAL INFECTION [None]
